FAERS Safety Report 6213960-3 (Version None)
Quarter: 2009Q2

REPORT INFORMATION
  Report Type: 
  Country: None (occurrence: None)
  Receive Date: 20090601
  Receipt Date: 20090601
  Transmission Date: 20091009
  Serious: Yes (Other)
  Sender: FDA-Public Use
  Company Number: None

PATIENT
  Age: 70 Year
  Sex: Female
  Weight: 48.5349 kg

DRUGS (2)
  1. VYTORIN [Suspect]
     Indication: TYPE IIA HYPERLIPIDAEMIA
     Dosage: VYTORIN 10/40 QD PO
     Route: 048
  2. SIMVASTATIN [Suspect]
     Dosage: SIMVASTATIN QD PO
     Route: 048

REACTIONS (2)
  - MALABSORPTION [None]
  - WEIGHT DECREASED [None]
